FAERS Safety Report 4762145-6 (Version None)
Quarter: 2005Q3

REPORT INFORMATION
  Report Type: 
  Country: None (occurrence: None)
  Receive Date: 20050906
  Receipt Date: 20050906
  Transmission Date: 20060218
  Serious: Yes (Life-Threatening, Disabling, Congenital Anomaly)
  Sender: FDA-Public Use
  Company Number: None

PATIENT
  Age: 46 Year
  Sex: Male
  Weight: 127.0072 kg

DRUGS (8)
  1. LEXAPRO [Suspect]
     Indication: DEPRESSION
     Dates: start: 20040101, end: 20050601
  2. ZOLOFT [Suspect]
     Dates: start: 19950301, end: 20040101
  3. PROVIGIL [Concomitant]
  4. TRILEPTAL [Concomitant]
  5. SEROQUEL [Concomitant]
  6. BUSPAR [Concomitant]
  7. ULTRAMADOL [Concomitant]
  8. FLEXERIL [Concomitant]

REACTIONS (21)
  - AGGRESSION [None]
  - BALANCE DISORDER [None]
  - BRAIN DAMAGE [None]
  - BRUXISM [None]
  - CHILLS [None]
  - DISTURBANCE IN ATTENTION [None]
  - DYSSTASIA [None]
  - FALL [None]
  - HEADACHE [None]
  - HEART RATE INCREASED [None]
  - HYPERACUSIS [None]
  - HYPERSENSITIVITY [None]
  - HYPERTENSION [None]
  - PANIC REACTION [None]
  - PARAESTHESIA [None]
  - PHOTOPHOBIA [None]
  - PREMATURE EJACULATION [None]
  - SEXUAL DYSFUNCTION [None]
  - SLEEP DISORDER [None]
  - VERTIGO [None]
  - WEIGHT INCREASED [None]
